FAERS Safety Report 21667681 (Version 1)
Quarter: 2022Q4

REPORT INFORMATION
  Report Type: Report from Study
  Country: US (occurrence: US)
  Receive Date: 20221201
  Receipt Date: 20221201
  Transmission Date: 20230113
  Serious: No
  Sender: FDA-Public Use
  Company Number: US-ABBVIE-22K-163-4457443-00

PATIENT
  Sex: Female
  Weight: 107 kg

DRUGS (6)
  1. HUMIRA [Suspect]
     Active Substance: ADALIMUMAB
     Indication: Rheumatoid arthritis
     Dosage: START DATE- FEB 2022?STRENGTH- 40 MG
     Route: 058
  2. FOLIC ACID [Concomitant]
     Active Substance: FOLIC ACID
     Indication: Product used for unknown indication
     Dates: start: 202205
  3. VENLAFAXINE [Concomitant]
     Active Substance: VENLAFAXINE HYDROCHLORIDE
     Indication: Product used for unknown indication
  4. LEFLUNOMIDE [Concomitant]
     Active Substance: LEFLUNOMIDE
     Indication: Product used for unknown indication
     Dates: start: 202205, end: 202208
  5. NORTRIPTYLINE [Concomitant]
     Active Substance: NORTRIPTYLINE
     Indication: Product used for unknown indication
  6. PROPRANOLOL HYDROCHLORIDE [Concomitant]
     Active Substance: PROPRANOLOL HYDROCHLORIDE
     Indication: Product used for unknown indication

REACTIONS (6)
  - Inflammation [Recovered/Resolved]
  - Pruritus [Recovered/Resolved]
  - Pain in extremity [Not Recovered/Not Resolved]
  - Erythema [Recovered/Resolved]
  - Arthralgia [Not Recovered/Not Resolved]
  - Acne [Recovered/Resolved]

NARRATIVE: CASE EVENT DATE: 20220101
